FAERS Safety Report 5534676-2 (Version None)
Quarter: 2007Q4

REPORT INFORMATION
  Report Type: 
  Country: None (occurrence: None)
  Receive Date: 20071205
  Receipt Date: 20071126
  Transmission Date: 20080405
  Serious: Yes (Life-Threatening)
  Sender: FDA-Public Use
  Company Number: FR-SANOFI-SYNTHELABO-A02200703532

PATIENT
  Sex: Male

DRUGS (4)
  1. LEPTICUR [Concomitant]
     Route: 030
     Dates: start: 20070411, end: 20070411
  2. DIANTALVIC [Suspect]
     Indication: DRUG DEPENDENCE
     Dosage: 30 DF FROM 24 TO 48 HOURS
     Route: 048
  3. LOXAPINE HCL [Suspect]
     Indication: AGITATION
     Route: 030
     Dates: start: 20070411, end: 20070411
  4. ZOLPIDEM TARTRATE [Suspect]
     Indication: DRUG DEPENDENCE
     Dosage: 50 MG TO 60 MG IN 24 HOURS
     Route: 048

REACTIONS (9)
  - DEPRESSED LEVEL OF CONSCIOUSNESS [None]
  - DISSEMINATED INTRAVASCULAR COAGULATION [None]
  - DRUG ABUSE [None]
  - GRAND MAL CONVULSION [None]
  - NEUROLEPTIC MALIGNANT SYNDROME [None]
  - PYREXIA [None]
  - RENAL FAILURE [None]
  - RHABDOMYOLYSIS [None]
  - TACHYPNOEA [None]
